FAERS Safety Report 18233777 (Version 1)
Quarter: 2020Q3

REPORT INFORMATION
  Report Type: Other
  Country: JP (occurrence: JP)
  Receive Date: 20200904
  Receipt Date: 20200904
  Transmission Date: 20201103
  Serious: Yes (Hospitalization, Other)
  Sender: FDA-Public Use
  Company Number: JP-RECORDATI RARE DISEASES-2089403

PATIENT
  Age: 64 Year
  Sex: Male
  Weight: 56 kg

DRUGS (5)
  1. SITAGLIPTIN [Concomitant]
     Active Substance: SITAGLIPTIN
     Dates: end: 20190205
  2. LINAGLIPTIN [Concomitant]
     Active Substance: LINAGLIPTIN
     Dates: start: 20190205, end: 20190320
  3. METYRAPONE [Concomitant]
     Active Substance: METYRAPONE
     Dates: start: 201301, end: 20190305
  4. GLIMEPIRIDE. [Concomitant]
     Active Substance: GLIMEPIRIDE
     Dates: start: 20190205, end: 20190320
  5. SIGNIFOR [Suspect]
     Active Substance: PASIREOTIDE DIASPARTATE
     Indication: PITUITARY-DEPENDENT CUSHING^S SYNDROME
     Route: 030
     Dates: start: 20190108

REACTIONS (4)
  - Hyperadrenocorticism [Recovered/Resolved]
  - Fatigue [Recovered/Resolved]
  - Hyperglycaemia [Recovered/Resolved]
  - Concomitant disease aggravated [Recovered/Resolved]

NARRATIVE: CASE EVENT DATE: 20190319
